FAERS Safety Report 20134358 (Version 6)
Quarter: 2022Q3

REPORT INFORMATION
  Report Type: Report from Study
  Country: GB (occurrence: None)
  Receive Date: 20211201
  Receipt Date: 20220705
  Transmission Date: 20221026
  Serious: Yes (Hospitalization)
  Sender: FDA-Public Use
  Company Number: GB-ROCHE-2969134

PATIENT
  Age: 72 Year
  Sex: Male
  Weight: 74 kg

DRUGS (4)
  1. ATEZOLIZUMAB [Suspect]
     Active Substance: ATEZOLIZUMAB
     Indication: Renal cell carcinoma
     Dosage: ON 04/NOV/2021, RECEIVED MOST RECENT DOSE 1200 MG OF ATEZOLIZUMAB (IV) PRIOR TO ADVERSE EVENT (AE) A
     Route: 041
     Dates: start: 20211015
  2. CABOZANTINIB [Suspect]
     Active Substance: CABOZANTINIB
     Indication: Renal cell carcinoma
     Dosage: ON 04/NOV/2021, RECEIVED MOST RECENT DOSE 600 MG OF CABOZANTINIB (IV) PRIOR TO ADVERSE EVENT (AE) AN
     Route: 048
     Dates: start: 20211015
  3. MOVICOL [Concomitant]
     Active Substance: POLYETHYLENE GLYCOL 3350\POTASSIUM CHLORIDE\SODIUM BICARBONATE\SODIUM CHLORIDE
     Indication: Constipation
     Dosage: 1 OTHER
     Route: 048
     Dates: start: 20211104
  4. UREA [Concomitant]
     Active Substance: UREA
     Indication: Palmar-plantar erythrodysaesthesia syndrome
     Dosage: 1 OTHER
     Route: 061
     Dates: start: 20211125

REACTIONS (1)
  - Presyncope [Recovered/Resolved]

NARRATIVE: CASE EVENT DATE: 20211126
